FAERS Safety Report 6541025-X (Version None)
Quarter: 2010Q1

REPORT INFORMATION
  Report Type: 
  Country: None (occurrence: None)
  Receive Date: 20100118
  Receipt Date: 20100107
  Transmission Date: 20100710
  Serious: Yes (Other)
  Sender: FDA-Public Use
  Company Number: JP-BRISTOL-MYERS SQUIBB COMPANY-14934327

PATIENT
  Age: 66 Year
  Sex: Male
  Weight: 57 kg

DRUGS (10)
  1. CETUXIMAB [Suspect]
     Indication: HEAD AND NECK CANCER
     Dosage: CETUXIMAB 5MG/ML RECENT INF:8DEC09 ALSO TOOK 397.5MG
     Route: 042
     Dates: start: 20090911
  2. CISPLATIN [Suspect]
     Indication: HEAD AND NECK CANCER
     Route: 042
     Dates: start: 20090911, end: 20091208
  3. FLUOROURACIL [Suspect]
     Indication: HEAD AND NECK CANCER
     Dosage: RECENT INF:8DEC09 6360MG/4DAYS (1000 MG/M2 AS CONT. INF FROM D1-4 OF CYCLE)
     Route: 042
     Dates: start: 20090911
  4. HIRUDOID [Concomitant]
     Indication: DRY SKIN PROPHYLAXIS
     Route: 061
     Dates: start: 20090913
  5. ALMETA [Concomitant]
     Indication: RASH
     Route: 061
     Dates: start: 20091004
  6. GAMOFA [Concomitant]
     Indication: GASTRITIS
     Dosage: GAMOFA D
     Route: 048
  7. MUCOSTA [Concomitant]
     Indication: GASTRITIS
     Route: 048
  8. MYSER [Concomitant]
     Indication: RASH
     Route: 061
     Dates: start: 20091004
  9. PANTOSIN [Concomitant]
     Indication: CONSTIPATION
     Route: 048
     Dates: start: 20090915
  10. MAGMITT [Concomitant]
     Indication: CONSTIPATION
     Route: 048
     Dates: start: 20090915

REACTIONS (5)
  - BLOOD GLUCOSE INCREASED [None]
  - DEPRESSED LEVEL OF CONSCIOUSNESS [None]
  - ORTHOSTATIC HYPOTENSION [None]
  - SKIN LACERATION [None]
  - SYNCOPE [None]
